FAERS Safety Report 4424688-4 (Version None)
Quarter: 2004Q3

REPORT INFORMATION
  Report Type: 
  Country: None (occurrence: None)
  Receive Date: 20040809
  Receipt Date: 20040726
  Transmission Date: 20050211
  Serious: Yes (Hospitalization)
  Sender: FDA-Public Use
  Company Number: 04P-056-0266882-00

PATIENT
  Age: 50 Year
  Sex: Female
  Weight: 42 kg

DRUGS (11)
  1. HUMIRA [Suspect]
     Indication: RHEUMATOID ARTHRITIS
     Dosage: 40 MG, 1 IN 2 WK, SUBCUTANEOUS
     Route: 058
     Dates: start: 20031020, end: 20040531
  2. FLUCONAZOLE [Concomitant]
  3. HYDROXYCHLOROQUINE PHOSPHATE [Concomitant]
  4. SULFASALAZINE [Concomitant]
  5. METHOTREXATE [Concomitant]
  6. FOLIC ACID [Concomitant]
  7. ALENDRONATE SODIUM [Concomitant]
  8. CALCIUM CARBONATE [Concomitant]
  9. PREDNISONE [Concomitant]
  10. DICLOFENAC SODIUM [Concomitant]
  11. OMEPRAZOLE [Concomitant]

REACTIONS (6)
  - ANOREXIA [None]
  - CANDIDIASIS [None]
  - CULTURE STOOL POSITIVE [None]
  - DIARRHOEA [None]
  - STAPHYLOCOCCAL INFECTION [None]
  - WEIGHT DECREASED [None]
